FAERS Safety Report 8496500-8 (Version None)
Quarter: 2012Q2

REPORT INFORMATION
  Report Type: 
  Country: None (occurrence: None)
  Receive Date: 20120629
  Receipt Date: 20120619
  Transmission Date: 20120825
  Serious: Yes (Life-Threatening, Hospitalization)
  Sender: FDA-Public Use
  Company Number: DSM-2012-00690

PATIENT
  Sex: Female

DRUGS (1)
  1. OLMESARTAN MEDOXOMIL [Suspect]
     Indication: PRODUCT USED FOR UNKNOWN INDICATION
     Dosage: 40 MG,ORAL
     Route: 048
     Dates: start: 20100201

REACTIONS (5)
  - SERUM FERRITIN INCREASED [None]
  - GASTRIC DISORDER [None]
  - MALAISE [None]
  - JAUNDICE [None]
  - LIVER TRANSPLANT [None]
